FAERS Safety Report 6771585-5 (Version None)
Quarter: 2010Q2

REPORT INFORMATION
  Report Type: 
  Country: None (occurrence: None)
  Receive Date: 20100616
  Receipt Date: 20100602
  Transmission Date: 20101027
  Serious: Yes (Hospitalization)
  Sender: FDA-Public Use
  Company Number: PHHY2010MT35973

PATIENT
  Age: 50 Year
  Sex: Female

DRUGS (6)
  1. DIOVAN [Suspect]
     Indication: HYPERTENSION
     Dosage: 160 MG
     Route: 048
     Dates: start: 20080801
  2. ATARAX [Concomitant]
     Dosage: 25 MG
     Route: 048
     Dates: start: 20100301
  3. ZOCOR [Concomitant]
     Dosage: 20 MG, DAILY
  4. ATENOLOL [Concomitant]
     Dosage: 50 MG, DAILY
  5. BUMEX [Concomitant]
     Dosage: 1 MG, DAILY
  6. OMEPRAZOLE [Concomitant]
     Dosage: 20 MG, BID

REACTIONS (2)
  - DYSPNOEA [None]
  - SALIVARY GLAND ENLARGEMENT [None]
